APPROVED DRUG PRODUCT: POTASSIUM CHLORIDE
Active Ingredient: POTASSIUM CHLORIDE
Strength: 20MEQ/15ML
Dosage Form/Route: SOLUTION;ORAL
Application: A218960 | Product #001 | TE Code: AA
Applicant: TARO PHARMACEUTICAL INDUSTRIES LTD
Approved: Jul 22, 2025 | RLD: No | RS: No | Type: RX